FAERS Safety Report 25139875 (Version 5)
Quarter: 2025Q2

REPORT INFORMATION
  Report Type: Spontaneous
  Country: VE (occurrence: VE)
  Receive Date: 20250331
  Receipt Date: 20250424
  Transmission Date: 20250716
  Serious: Yes (Other)
  Sender: ROCHE
  Company Number: VE-ROCHE-10000242073

PATIENT
  Age: 62 Year
  Sex: Male

DRUGS (1)
  1. AVASTIN [Suspect]
     Active Substance: BEVACIZUMAB
     Indication: Diabetic retinopathy
     Dosage: DOSE WAS NOT REPORTED
     Route: 050
     Dates: start: 202501

REACTIONS (5)
  - Off label use [Unknown]
  - Blindness [Unknown]
  - Retinal detachment [Unknown]
  - Inflammation [Unknown]
  - Off label use [Unknown]

NARRATIVE: CASE EVENT DATE: 20250101
